FAERS Safety Report 21869549 (Version 3)
Quarter: 2023Q2

REPORT INFORMATION
  Report Type: Report from Study
  Country: US (occurrence: US)
  Receive Date: 20230117
  Receipt Date: 20230502
  Transmission Date: 20230721
  Serious: Yes (Other)
  Sender: FDA-Public Use
  Company Number: US-ABBVIE-4270806

PATIENT
  Age: 63 Year
  Sex: Female

DRUGS (2)
  1. HUMIRA [Suspect]
     Active Substance: ADALIMUMAB
     Indication: Rheumatoid arthritis
     Dosage: CITRATE FREE?STRENGTH: 40 MG
     Route: 058
     Dates: start: 20230105, end: 20230105
  2. HUMIRA [Suspect]
     Active Substance: ADALIMUMAB
     Dosage: CITRATE FREE?STRENGTH: 40 MG
     Route: 058
     Dates: start: 20220505, end: 202212

REACTIONS (7)
  - Post procedural sepsis [Unknown]
  - Hypotension [Unknown]
  - Sleeve gastrectomy [Recovering/Resolving]
  - Hepatic cirrhosis [Unknown]
  - Fatigue [Unknown]
  - Anaemia [Unknown]
  - Weight decreased [Unknown]

NARRATIVE: CASE EVENT DATE: 20221223
